FAERS Safety Report 10606628 (Version 1)
Quarter: 2014Q4

REPORT INFORMATION
  Report Type: Spontaneous
  Country: US (occurrence: None)
  Receive Date: 20141124
  Receipt Date: 20141124
  Transmission Date: 20150529
  Serious: Yes (Life-Threatening, Hospitalization, Disabling)
  Sender: FDA-Public Use
  Company Number: None

PATIENT
  Age: 48 Year
  Sex: Female
  Weight: 68.04 kg

DRUGS (1)
  1. BOTOX [Suspect]
     Active Substance: ONABOTULINUMTOXINA
     Dosage: ONCE GIVEN INTO/UNDER THE SKIN

REACTIONS (22)
  - Headache [None]
  - Autonomic neuropathy [None]
  - Palpitations [None]
  - Memory impairment [None]
  - Exercise lack of [None]
  - Head discomfort [None]
  - Quality of life decreased [None]
  - Vision blurred [None]
  - Blepharospasm [None]
  - Nerve injury [None]
  - Dry mouth [None]
  - Dyspnoea [None]
  - Tachycardia [None]
  - Wrong technique in drug usage process [None]
  - Dry eye [None]
  - Malaise [None]
  - Insomnia [None]
  - Feeling abnormal [None]
  - Constipation [None]
  - Depression [None]
  - Fatigue [None]
  - Weight increased [None]

NARRATIVE: CASE EVENT DATE: 20130321
